FAERS Safety Report 9730945 (Version 1)
Quarter: 2013Q4

REPORT INFORMATION
  Report Type: Spontaneous
  Country: US (occurrence: US)
  Receive Date: 20131203
  Receipt Date: 20131203
  Transmission Date: 20140711
  Serious: No
  Sender: FDA-Public Use
  Company Number: US-BAYER-2013-147054

PATIENT
  Age: 24 Year
  Sex: Female
  Weight: 81.63 kg

DRUGS (1)
  1. MIDOL EXTENDED RELIEF CAPLET [Suspect]
     Dosage: UNK UNK, ONCE
     Route: 048
     Dates: start: 20131127, end: 20131127

REACTIONS (3)
  - Lip swelling [Not Recovered/Not Resolved]
  - Eye pruritus [Not Recovered/Not Resolved]
  - Throat irritation [Not Recovered/Not Resolved]
